FAERS Safety Report 7633259-8 (Version None)
Quarter: 2011Q3

REPORT INFORMATION
  Report Type: 
  Country: None (occurrence: None)
  Receive Date: 20110725
  Receipt Date: 20110713
  Transmission Date: 20111222
  Serious: Yes (Hospitalization)
  Sender: FDA-Public Use
  Company Number: AU-ROCHE-790271

PATIENT
  Sex: Male

DRUGS (5)
  1. CITALOPRAM HYDROCHLORIDE [Concomitant]
  2. METOPROLOL SUCCINATE [Concomitant]
  3. PRAZOSIN HYDROCHLORIDE [Concomitant]
  4. CELLCEPT [Suspect]
     Route: 048
     Dates: start: 20030902
  5. CYCLOSPORINE [Suspect]
     Route: 048
     Dates: start: 20030902, end: 20031007

REACTIONS (4)
  - LYMPHOCELE [None]
  - HYDRONEPHROSIS [None]
  - URETERIC OBSTRUCTION [None]
  - OVERDOSE [None]
